FAERS Safety Report 8219078-2 (Version None)
Quarter: 2012Q1

REPORT INFORMATION
  Report Type: 
  Country: None (occurrence: None)
  Receive Date: 20120307
  Receipt Date: 20090626
  Transmission Date: 20120608
  Serious: Yes (Death)
  Sender: FDA-Public Use
  Company Number: PHEH2009US06554

PATIENT
  Age: 66 Year
  Sex: Male
  Weight: 79.8 kg

DRUGS (5)
  1. AFINITOR [Suspect]
     Indication: RENAL CELL CARCINOMA
     Dosage: 5 MG, QD, ORAL
     Route: 048
     Dates: start: 20090410, end: 20090601
  2. LUNESTA [Concomitant]
  3. PLAVIX [Concomitant]
  4. DECADRON [Suspect]
     Dosage: 0.5 MG, ORAL
     Route: 048
     Dates: start: 20090501, end: 20090612
  5. LIPITOR [Concomitant]

REACTIONS (15)
  - TRICUSPID VALVE INCOMPETENCE [None]
  - PLEURAL EFFUSION [None]
  - DYSPNOEA [None]
  - HYPOXIA [None]
  - EJECTION FRACTION DECREASED [None]
  - DIASTOLIC DYSFUNCTION [None]
  - PNEUMOCYSTIS JIROVECI PNEUMONIA [None]
  - CARDIAC DISORDER [None]
  - HYPOKINESIA [None]
  - HAEMOPTYSIS [None]
  - OXYGEN SATURATION DECREASED [None]
  - MULTI-ORGAN FAILURE [None]
  - EFFUSION [None]
  - DILATATION VENTRICULAR [None]
  - LUNG DISORDER [None]
